FAERS Safety Report 21105876 (Version 1)
Quarter: 2022Q3

REPORT INFORMATION
  Report Type: Spontaneous
  Country: CN (occurrence: CN)
  Receive Date: 20220720
  Receipt Date: 20220720
  Transmission Date: 20221027
  Serious: Yes (Hospitalization)
  Sender: FDA-Public Use
  Company Number: CN-009507513-2207CHN006030

PATIENT
  Age: 60 Year
  Sex: Male
  Weight: 54 kg

DRUGS (2)
  1. KEYTRUDA [Suspect]
     Active Substance: PEMBROLIZUMAB
     Indication: Drug therapy
     Dosage: 200 MG, EVERY 21 DAYS, IV DRIP
     Route: 041
     Dates: start: 20220401, end: 20220711
  2. LENVATINIB MESYLATE [Suspect]
     Active Substance: LENVATINIB MESYLATE
     Dosage: 8 MG, QD, ORAL
     Route: 048
     Dates: start: 20220310, end: 20220711

REACTIONS (1)
  - Blood thyroid stimulating hormone increased [Not Recovered/Not Resolved]

NARRATIVE: CASE EVENT DATE: 20220613
